FAERS Safety Report 4687423-0 (Version None)
Quarter: 2005Q2

REPORT INFORMATION
  Report Type: 
  Country: None (occurrence: None)
  Receive Date: 20050610
  Receipt Date: 20050531
  Transmission Date: 20051028
  Serious: Yes (Hospitalization)
  Sender: FDA-Public Use
  Company Number: US-KINGPHARMUSA00001-K200500730

PATIENT
  Age: 78 Year
  Sex: Male

DRUGS (9)
  1. ALTACE [Suspect]
     Route: 048
  2. EQUANIL [Suspect]
     Route: 048
     Dates: start: 20050215
  3. PREVISCAN [Suspect]
     Route: 048
     Dates: end: 20050421
  4. CORDARONE [Suspect]
     Dosage: 200 MG, QD
     Route: 048
  5. MUCOMYST [Concomitant]
  6. DIFFU K [Concomitant]
     Route: 048
  7. SPASFON [Concomitant]
  8. CARBOSYLANE [Concomitant]
     Route: 048
  9. OXEOL [Concomitant]
     Dosage: UNK, UNK
     Route: 048

REACTIONS (6)
  - CONDITION AGGRAVATED [None]
  - GENERAL PHYSICAL HEALTH DETERIORATION [None]
  - HAEMATURIA [None]
  - INFLAMMATION [None]
  - PROTEINURIA [None]
  - VASCULAR PURPURA [None]
